FAERS Safety Report 5075820-3 (Version None)
Quarter: 2006Q3

REPORT INFORMATION
  Report Type: 
  Country: None (occurrence: None)
  Receive Date: 20060809
  Receipt Date: 20060802
  Transmission Date: 20061208
  Serious: Yes (Death, Life-Threatening)
  Sender: FDA-Public Use
  Company Number: 456536

PATIENT
  Age: 81 Year
  Sex: Female

DRUGS (7)
  1. CARVEDILOL [Suspect]
     Indication: CARDIAC FAILURE CHRONIC
     Route: 048
     Dates: start: 20040117, end: 20040916
  2. DIOVAN [Concomitant]
     Dates: start: 20031225, end: 20040916
  3. LOCHOL [Concomitant]
     Dates: start: 20031225, end: 20040916
  4. LASIX [Concomitant]
     Dates: start: 20031225, end: 20040103
  5. ALDACTONE [Concomitant]
     Dates: start: 20040103, end: 20040916
  6. GASTER D [Concomitant]
     Dates: start: 20040107, end: 20040203
  7. LANIRAPID [Concomitant]
     Dates: start: 20031225, end: 20040916

REACTIONS (2)
  - VENTRICULAR FIBRILLATION [None]
  - VENTRICULAR TACHYCARDIA [None]
